FAERS Safety Report 21752916 (Version 2)
Quarter: 2023Q1

REPORT INFORMATION
  Report Type: Report from Study
  Country: US (occurrence: US)
  Receive Date: 20221220
  Receipt Date: 20230116
  Transmission Date: 20230418
  Serious: Yes (Hospitalization, Other)
  Sender: FDA-Public Use
  Company Number: US-ABBVIE-4203979

PATIENT
  Sex: Male

DRUGS (1)
  1. HUMIRA [Suspect]
     Active Substance: ADALIMUMAB
     Indication: Uveitis
     Dosage: CITRATE FREE? FORM STRENGTH 40 MILLIGRAMS
     Route: 058
     Dates: start: 20220517

REACTIONS (2)
  - Road traffic accident [Unknown]
  - Vision blurred [Unknown]
